FAERS Safety Report 15832817 (Version 1)
Quarter: 2019Q1

REPORT INFORMATION
  Report Type: Report from Study
  Country: US (occurrence: US)
  Receive Date: 20190116
  Receipt Date: 20190116
  Transmission Date: 20190417
  Serious: Yes (Hospitalization, Other)
  Sender: FDA-Public Use
  Company Number: US-MYLANLABS-2019M1003219

PATIENT

DRUGS (1)
  1. GLATIRAMER ACETATE INJECTION [Suspect]
     Active Substance: GLATIRAMER ACETATE
     Indication: RELAPSING-REMITTING MULTIPLE SCLEROSIS
     Dosage: 40 MILLIGRAM

REACTIONS (4)
  - Post procedural complication [Not Recovered/Not Resolved]
  - Post procedural infection [Not Recovered/Not Resolved]
  - Hiatus hernia [Recovered/Resolved]
  - Product dose omission [Unknown]
